FAERS Safety Report 14783497 (Version 1)
Quarter: 2018Q2

REPORT INFORMATION
  Report Type: Not Available
  Country: US (occurrence: US)
  Receive Date: 20180420
  Receipt Date: 20180420
  Transmission Date: 20180711
  Serious: No
  Sender: FDA-Public Use
  Company Number: US-NEUROCRINE BIOSCIENCES INC.-2018NBI01104

PATIENT
  Age: 71 Year
  Sex: Female

DRUGS (6)
  1. CLONAZEPAM. [Concomitant]
     Active Substance: CLONAZEPAM
  2. LEVOTHYROXINE. [Concomitant]
     Active Substance: LEVOTHYROXINE
  3. INGREZZA [Suspect]
     Active Substance: VALBENAZINE
     Indication: TARDIVE DYSKINESIA
     Dosage: MONDAY, WEDNESDAY, FRIDAY AND SUNDAY
     Route: 048
     Dates: start: 201706
  4. INGREZZA [Suspect]
     Active Substance: VALBENAZINE
     Dosage: TUESDAY, THURSDAY AND SATURDAY
     Route: 048
     Dates: start: 201706
  5. CLONIDINE. [Concomitant]
     Active Substance: CLONIDINE
  6. LIPITOR [Concomitant]
     Active Substance: ATORVASTATIN CALCIUM

REACTIONS (3)
  - Muscle spasms [Unknown]
  - Off label use [Not Recovered/Not Resolved]
  - Nightmare [Unknown]

NARRATIVE: CASE EVENT DATE: 201802
